FAERS Safety Report 17405976 (Version 1)
Quarter: 2020Q1

REPORT INFORMATION
  Report Type: Spontaneous
  Country: US (occurrence: US)
  Receive Date: 20200212
  Receipt Date: 20200212
  Transmission Date: 20200409
  Serious: No
  Sender: FDA-Public Use
  Company Number: US-ALLERGAN-1925618US

PATIENT
  Sex: Female

DRUGS (1)
  1. TAZORAC [Suspect]
     Active Substance: TAZAROTENE
     Indication: SKIN WRINKLING
     Dosage: UNK
     Route: 061

REACTIONS (3)
  - Off label use [Unknown]
  - Expired product administered [Unknown]
  - Dry skin [Unknown]
